FAERS Safety Report 8199289-5 (Version None)
Quarter: 2012Q1

REPORT INFORMATION
  Report Type: 
  Country: None (occurrence: None)
  Receive Date: 20120309
  Receipt Date: 20120302
  Transmission Date: 20120608
  Serious: No
  Sender: FDA-Public Use
  Company Number: CHNY2012JP000444

PATIENT
  Age: 18 Year
  Sex: Female

DRUGS (11)
  1. SENNA-MINT WAF [Suspect]
     Dosage: 24 MG, QD
     Route: 048
  2. BROTIZOLAM [Concomitant]
     Dosage: 0.25 MG, QD
     Route: 048
  3. QUETIAPINE FUMARATE [Concomitant]
     Dosage: 25 MG, QD
     Route: 048
  4. OLANZAPINE [Concomitant]
     Dosage: 5 MG, QD
     Route: 048
  5. SERTRALINE HYDROCHLORIDE [Concomitant]
     Dosage: 25 MG, BID
     Route: 048
  6. MOSAPRIDE CITRATE HYDRATE [Concomitant]
     Dosage: 5 MG, TID
     Route: 048
  7. LORAZEPAM [Concomitant]
     Dosage: 0.5 MG, TID
     Route: 048
  8. RISPERIDONE [Concomitant]
     Dosage: 1 MG, QD
     Route: 048
  9. BROMAZEPAM [Concomitant]
     Dosage: 2 MG, TID
     Route: 048
  10. ZOLPIDEM [Concomitant]
     Dosage: 10 MG, QD
     Route: 048
  11. FLUNITRAZEPAM [Concomitant]
     Dosage: 1 MG, QD
     Route: 048

REACTIONS (1)
  - OVERDOSE [None]
